FAERS Safety Report 8905894 (Version 1)
Quarter: 2012Q4

REPORT INFORMATION
  Report Type: 
  Country: MA (occurrence: MA)
  Receive Date: 20121109
  Receipt Date: 20121109
  Transmission Date: 20130627
  Serious: Yes (Life-Threatening, Other)
  Sender: FDA-Public Use
  Company Number: MA-JHP PHARMACEUTICALS, LLC-JHP201200513

PATIENT

DRUGS (1)
  1. ADRENALIN CHLORIDE [Suspect]
     Indication: WRONG DRUG ADMINISTERED

REACTIONS (3)
  - Medication error [Recovered/Resolved]
  - Pulmonary oedema [Recovered/Resolved]
  - Wrong drug administered [None]
